FAERS Safety Report 8305682-X (Version None)
Quarter: 2012Q2

REPORT INFORMATION
  Report Type: 
  Country: None (occurrence: None)
  Receive Date: 20120423
  Receipt Date: 20120413
  Transmission Date: 20120825
  Serious: Yes (Death)
  Sender: FDA-Public Use
  Company Number: US-VERTEX PHARMACEUTICALS INC.-AE-2012-005297

PATIENT
  Sex: Female

DRUGS (3)
  1. INCIVEK [Suspect]
     Indication: HEPATITIS C
  2. RIBAVIRIN [Concomitant]
  3. PEGINTERFERON [Concomitant]
     Indication: HEPATITIS C

REACTIONS (3)
  - FACE OEDEMA [None]
  - SEPSIS [None]
  - PNEUMONIA [None]
